FAERS Safety Report 6815608-3 (Version None)
Quarter: 2010Q3

REPORT INFORMATION
  Report Type: 
  Country: None (occurrence: None)
  Receive Date: 20100702
  Receipt Date: 20100630
  Transmission Date: 20110219
  Serious: Yes (Death, Hospitalization, Other)
  Sender: FDA-Public Use
  Company Number: US-ABBOTT-10P-163-0654463-00

PATIENT
  Sex: Female

DRUGS (3)
  1. ZEMPLAR [Suspect]
     Indication: HYPERPARATHYROIDISM
  2. UNKNOWN BLOOD THINNER [Concomitant]
     Indication: THROMBOSIS
  3. UNKNOWN BLOOD THINNER [Concomitant]

REACTIONS (2)
  - ABDOMINAL HERNIA [None]
  - CARDIO-RESPIRATORY ARREST [None]
